FAERS Safety Report 9912615 (Version 1)
Quarter: 2014Q1

REPORT INFORMATION
  Report Type: Spontaneous
  Country: US (occurrence: None)
  Receive Date: 20140212
  Receipt Date: 20140212
  Transmission Date: 20141002
  Serious: Yes (Disabling)
  Sender: FDA-Public Use
  Company Number: 2014-US-001464

PATIENT
  Age: 50 Year
  Sex: Female

DRUGS (1)
  1. XYREM(SODIUM OXYBATE) [Suspect]
     Indication: SLEEP PHASE RHYTHM DISTURBANCE
     Route: 048
     Dates: start: 200309, end: 2003

REACTIONS (2)
  - Drug dose omission [None]
  - Insomnia [None]
